FAERS Safety Report 19274389 (Version 4)
Quarter: 2021Q3

REPORT INFORMATION
  Report Type: Report from Study
  Country: US (occurrence: US)
  Receive Date: 20210519
  Receipt Date: 20210914
  Transmission Date: 20211014
  Serious: Yes (Other)
  Sender: FDA-Public Use
  Company Number: US-GLAXOSMITHKLINE-US2021103745

PATIENT
  Sex: Female

DRUGS (4)
  1. NIRAPARIB [Suspect]
     Active Substance: NIRAPARIB
     Dosage: 100 MG, QD
  2. NIRAPARIB [Suspect]
     Active Substance: NIRAPARIB
     Indication: OVARIAN CANCER
     Dosage: 100 MG, QD
     Route: 048
     Dates: start: 20210522
  3. NIRAPARIB [Suspect]
     Active Substance: NIRAPARIB
     Indication: MALIGNANT PERITONEAL NEOPLASM
     Dosage: UNK UNK, QD
  4. NIRAPARIB [Suspect]
     Active Substance: NIRAPARIB
     Indication: RETROPERITONEAL CANCER
     Dosage: 100 MG, QD
     Route: 048
     Dates: start: 20210326

REACTIONS (9)
  - Constipation [Not Recovered/Not Resolved]
  - Product dose omission issue [Recovered/Resolved]
  - Nausea [Not Recovered/Not Resolved]
  - Off label use [Unknown]
  - Stress [Not Recovered/Not Resolved]
  - Heart rate increased [Not Recovered/Not Resolved]
  - Haemorrhage [Unknown]
  - Dehydration [Unknown]
  - Blood pressure increased [Not Recovered/Not Resolved]
